FAERS Safety Report 17582647 (Version 1)
Quarter: 2020Q1

REPORT INFORMATION
  Report Type: Spontaneous
  Country: US (occurrence: US)
  Receive Date: 20200325
  Receipt Date: 20200325
  Transmission Date: 20200409
  Serious: Yes (Life-Threatening, Other)
  Sender: FDA-Public Use
  Company Number: US-ALLERGAN-2013029US

PATIENT
  Sex: Male

DRUGS (2)
  1. IMURAN [Suspect]
     Active Substance: AZATHIOPRINE
     Indication: COLITIS ULCERATIVE
     Dates: start: 2000
  2. MESALAZINE UNK [Suspect]
     Active Substance: MESALAMINE
     Indication: COLITIS ULCERATIVE
     Dates: start: 2000

REACTIONS (7)
  - IIIrd nerve paralysis [Recovering/Resolving]
  - VIth nerve paralysis [Recovering/Resolving]
  - Cavernous sinus syndrome [Recovering/Resolving]
  - Rash [Recovering/Resolving]
  - Post transplant lymphoproliferative disorder [Recovering/Resolving]
  - Vestibular disorder [Recovering/Resolving]
  - B-cell lymphoma [Recovering/Resolving]

NARRATIVE: CASE EVENT DATE: 201907
